FAERS Safety Report 6088613-5 (Version None)
Quarter: 2009Q1

REPORT INFORMATION
  Report Type: 
  Country: None (occurrence: None)
  Receive Date: 20090224
  Receipt Date: 20090203
  Transmission Date: 20090719
  Serious: Yes (Other)
  Sender: FDA-Public Use
  Company Number: US-PFIZER INC-2009161436

PATIENT
  Sex: Female

DRUGS (2)
  1. LYRICA [Suspect]
     Indication: FIBROMYALGIA
     Dosage: UNK
  2. ANALGESICS [Concomitant]

REACTIONS (3)
  - DRUG INEFFECTIVE [None]
  - HAEMOPTYSIS [None]
  - OEDEMA PERIPHERAL [None]
